FAERS Safety Report 24636947 (Version 1)
Quarter: 2024Q4

REPORT INFORMATION
  Report Type: Spontaneous
  Country: US (occurrence: US)
  Receive Date: 20241119
  Receipt Date: 20241119
  Transmission Date: 20250115
  Serious: Yes (Hospitalization, Other)
  Sender: SANOFI AVENTIS
  Company Number: US-SA-2024SA335425

PATIENT
  Age: 61 Year
  Sex: Male

DRUGS (1)
  1. DUPILUMAB [Suspect]
     Active Substance: DUPILUMAB
     Indication: Dermatitis atopic
     Dosage: UNK

REACTIONS (9)
  - Glomerulonephritis membranoproliferative [Unknown]
  - Fatigue [Unknown]
  - Abdominal pain [Unknown]
  - Nausea [Unknown]
  - Decreased appetite [Unknown]
  - Normocytic anaemia [Unknown]
  - Haematuria [Unknown]
  - Thrombocytopenia [Unknown]
  - Lupus nephritis [Unknown]
